FAERS Safety Report 9374826 (Version 1)
Quarter: 2013Q2

REPORT INFORMATION
  Report Type: Report from Study
  Country: CO (occurrence: CO)
  Receive Date: 20130628
  Receipt Date: 20130628
  Transmission Date: 20140414
  Serious: Yes (Hospitalization)
  Sender: FDA-Public Use
  Company Number: CO-SANOFI-AVENTIS-2013SA063638

PATIENT
  Age: 73 Year
  Sex: Female

DRUGS (10)
  1. LANTUS [Suspect]
     Indication: DIABETES MELLITUS
     Dosage: DOSE:36 UNIT(S)
     Route: 058
     Dates: start: 201302
  2. APIDRA [Suspect]
     Indication: DIABETES MELLITUS
     Dosage: DOSE:22 UNIT(S)
     Route: 058
     Dates: start: 201302
  3. METFORMIN [Suspect]
     Indication: DIABETES MELLITUS
     Route: 048
  4. FUROSEMIDE [Concomitant]
     Route: 048
  5. NIFEDIPINE [Concomitant]
     Route: 048
  6. METOPROLOL [Concomitant]
     Route: 048
  7. LEVOTHYROXINE [Concomitant]
     Indication: HYPOTHYROIDISM
     Route: 048
  8. ALLOPURINOL [Concomitant]
     Indication: GOUT
     Route: 048
  9. LOVASTATIN [Concomitant]
     Indication: DYSLIPIDAEMIA
     Route: 048
  10. ACETYLSALICYLIC ACID [Concomitant]
     Route: 048

REACTIONS (2)
  - Urinary incontinence [Recovering/Resolving]
  - Hyperglycaemia [Recovering/Resolving]
